FAERS Safety Report 5424506-1 (Version None)
Quarter: 2007Q3

REPORT INFORMATION
  Report Type: 
  Country: None (occurrence: None)
  Receive Date: 20070727
  Receipt Date: 20070403
  Transmission Date: 20080115
  Serious: No
  Sender: FDA-Public Use
  Company Number: 262473

PATIENT
  Age: 61 Year
  Sex: Female

DRUGS (2)
  1. LEVEMIR [Suspect]
     Indication: INSULIN-REQUIRING TYPE II DIABETES MELLITUS
     Dosage: SUBCUTANEOUS ; INCREASE 2 UNITS EVERY 4 DAYS, AS DIRECTED BY MD, SUBCUTANEOUS
     Route: 058
     Dates: start: 20070326, end: 20070402
  2. LEVEMIR [Suspect]
     Indication: INSULIN-REQUIRING TYPE II DIABETES MELLITUS
     Dosage: SUBCUTANEOUS ; INCREASE 2 UNITS EVERY 4 DAYS, AS DIRECTED BY MD, SUBCUTANEOUS
     Route: 058
     Dates: start: 20070402

REACTIONS (2)
  - BLOOD GLUCOSE INCREASED [None]
  - MYALGIA [None]
